FAERS Safety Report 4861930-X (Version None)
Quarter: 2005Q4

REPORT INFORMATION
  Report Type: 
  Country: None (occurrence: None)
  Receive Date: 20051130
  Receipt Date: 20041105
  Transmission Date: 20060501
  Serious: Yes (Other)
  Sender: FDA-Public Use
  Company Number: PHEH2004US10181

PATIENT
  Age: 35 Year
  Sex: Female
  Weight: 54.4 kg

DRUGS (1)
  1. LAMISIL [Suspect]
     Indication: NAIL TINEA
     Dosage: 250 MG, QD, ORAL
     Route: 048
     Dates: start: 20040907, end: 20040910

REACTIONS (3)
  - OEDEMA MOUTH [None]
  - PRURITUS GENERALISED [None]
  - URTICARIA [None]
